FAERS Safety Report 20815947 (Version 9)
Quarter: 2025Q2

REPORT INFORMATION
  Report Type: Spontaneous
  Country: US (occurrence: US)
  Receive Date: 20220511
  Receipt Date: 20250514
  Transmission Date: 20250716
  Serious: Yes (Other)
  Sender: PFIZER
  Company Number: US-PFIZER INC-202101871911

PATIENT
  Age: 66 Year
  Sex: Male

DRUGS (2)
  1. XELJANZ XR [Suspect]
     Active Substance: TOFACITINIB CITRATE
     Indication: Rheumatoid arthritis
     Dosage: 11 MG, DAILY
     Route: 048
  2. PREDNISONE [Concomitant]
     Active Substance: PREDNISONE

REACTIONS (4)
  - Knee operation [Recovering/Resolving]
  - Diabetes mellitus [Unknown]
  - Pain [Unknown]
  - Anaemia [Unknown]
